FAERS Safety Report 9520898 (Version 1)
Quarter: 2013Q3

REPORT INFORMATION
  Report Type: Spontaneous
  Country: US (occurrence: US)
  Receive Date: 20130913
  Receipt Date: 20130913
  Transmission Date: 20140515
  Serious: No
  Sender: FDA-Public Use
  Company Number: US-PFIZER INC-2013259149

PATIENT
  Age: 85 Year
  Sex: Female
  Weight: 83.92 kg

DRUGS (2)
  1. MOTRIN IB [Suspect]
     Indication: ANTIINFLAMMATORY THERAPY
     Dosage: 2 CAPLETS, ONCE
     Route: 048
     Dates: start: 20130819, end: 20130819
  2. MOTRIN IB [Suspect]
     Indication: PAIN
     Dosage: 2 CAPLETS, UNK
     Route: 048
     Dates: start: 20130820, end: 20130820

REACTIONS (3)
  - Dizziness [Recovered/Resolved]
  - Asthenia [Recovered/Resolved]
  - Fatigue [Recovered/Resolved]
